FAERS Safety Report 7682324-8 (Version None)
Quarter: 2011Q3

REPORT INFORMATION
  Report Type: 
  Country: None (occurrence: None)
  Receive Date: 20110805
  Receipt Date: 20110726
  Transmission Date: 20111222
  Serious: Yes (Hospitalization)
  Sender: FDA-Public Use
  Company Number: 2011SP035049

PATIENT
  Age: 40 Year
  Sex: Female

DRUGS (5)
  1. LUVERIS (LUTROPIN ALFA) (75 IU) [Suspect]
     Indication: INFERTILITY
     Dosage: 75 IU, SC
     Route: 058
     Dates: start: 20110601, end: 20110609
  2. OVITRELLE (CHORIOGONADOTROPIN ALFA) [Suspect]
     Indication: INFERTILITY
     Dosage: 250 MG, ONCE, SC
     Route: 058
     Dates: start: 20110612, end: 20110612
  3. GANIRELIX ACETATE INJECTION [Suspect]
     Indication: INFERTILITY
     Dosage: 0.25 MG, SC
     Route: 058
     Dates: start: 20110607, end: 20110612
  4. PUREGON (FOLLITROPIN BETA /01348901/) (50 IU) [Suspect]
     Indication: INFERTILITY
     Dosage: 200,225 IU, QD, SC
     Route: 058
     Dates: start: 20110605
  5. PUREGON (FOLLITROPIN BETA /01348901/) (50 IU) [Suspect]
     Indication: INFERTILITY
     Dosage: 200,225 IU, QD, SC
     Route: 058
     Dates: start: 20110601, end: 20110604

REACTIONS (1)
  - OVARIAN HYPERSTIMULATION SYNDROME [None]
